FAERS Safety Report 16789174 (Version 1)
Quarter: 2020Q3

REPORT INFORMATION
  Report Type: Spontaneous
  Country: RO (occurrence: RO)
  Receive Date: 20190910
  Receipt Date: 20190910
  Transmission Date: 20201105
  Serious: Yes (Death, Hospitalization, Other)
  Sender: FDA-Public Use
  Company Number: RO-SUN PHARMACEUTICAL INDUSTRIES LTD-2019RR-220396

PATIENT
  Age: 56 Year
  Sex: Female

DRUGS (6)
  1. PACLITAXEL. [Concomitant]
     Active Substance: PACLITAXEL
     Indication: BREAST CANCER METASTATIC
     Dosage: 80 MILLIGRAM/SQ. METER, WEEKLY
     Route: 065
     Dates: start: 20161003, end: 201712
  2. CAPECITABINE. [Suspect]
     Active Substance: CAPECITABINE
     Indication: BREAST CANCER METASTATIC
     Dosage: 3600 MILLIGRAM, DAILY
     Route: 065
     Dates: start: 201901, end: 201903
  3. HERCEPTIN [Suspect]
     Active Substance: TRASTUZUMAB
     Indication: BREAST CANCER METASTATIC
     Dosage: NO
     Route: 058
     Dates: start: 20161003, end: 20171220
  4. LAPATINIB [Concomitant]
     Active Substance: LAPATINIB
     Indication: BREAST CANCER METASTATIC
     Dosage: NO ()
     Route: 065
     Dates: start: 201901, end: 201903
  5. KADCYLA [Suspect]
     Active Substance: ADO-TRASTUZUMAB EMTANSINE
     Indication: BREAST CANCER METASTATIC
     Dosage: 3.6 MILLIGRAM/KILOGRAM, UNK
     Route: 042
     Dates: start: 201801, end: 201812
  6. IBANDRONIC ACID. [Suspect]
     Active Substance: IBANDRONIC ACID
     Indication: BREAST CANCER METASTATIC
     Dosage: ONGOING: NO
     Route: 042
     Dates: start: 20161003, end: 20171220

REACTIONS (5)
  - Coma [Fatal]
  - Gastrointestinal toxicity [Unknown]
  - Neuromuscular toxicity [Unknown]
  - Haematotoxicity [Unknown]
  - Transaminases increased [Unknown]

NARRATIVE: CASE EVENT DATE: 2017
